FAERS Safety Report 10428527 (Version 2)
Quarter: 2014Q3

REPORT INFORMATION
  Report Type: Report from Study
  Country: AR (occurrence: AR)
  Receive Date: 20140903
  Receipt Date: 20140903
  Transmission Date: 20150326
  Serious: Yes (Other)
  Sender: FDA-Public Use
  Company Number: PHHY2014AR073713

PATIENT
  Sex: Female

DRUGS (9)
  1. ONBREZ [Suspect]
     Active Substance: INDACATEROL
     Indication: OFF LABEL USE
  2. CORTICOSTEROIDS [Suspect]
     Active Substance: CORTICOSTEROID NOS
     Dosage: UNK UKN, EVERY 20 DAYS (DEPENDING ON THE OCASSION)
  3. FREVIA [Concomitant]
     Active Substance: BUDESONIDE\FORMOTEROL
     Dosage: UNK UKN, UNK
  4. SPIRIVA [Concomitant]
     Active Substance: TIOTROPIUM BROMIDE MONOHYDRATE
     Dosage: UNK UKN, UNK
  5. ALENDRONATE [Concomitant]
     Active Substance: ALENDRONATE SODIUM
     Dosage: UNK UKN, UNK
  6. SOMIT [Concomitant]
     Dosage: UNK UKN, UNK
  7. DELTISONA B [Concomitant]
     Dosage: UNK UKN, UNK
  8. ONBREZ [Suspect]
     Active Substance: INDACATEROL
     Indication: ASTHMA
     Dosage: 1 DF, QD
     Route: 055
     Dates: start: 20110524
  9. ALPLAX [Concomitant]
     Dosage: UNK UKN, UNK

REACTIONS (5)
  - Asthma [Not Recovered/Not Resolved]
  - Insomnia [Not Recovered/Not Resolved]
  - Bronchitis [Not Recovered/Not Resolved]
  - Drug dependence [Unknown]
  - Bone disorder [Not Recovered/Not Resolved]
